FAERS Safety Report 12061149 (Version 1)
Quarter: 2016Q1

REPORT INFORMATION
  Report Type: Spontaneous
  Country: US (occurrence: US)
  Receive Date: 20160210
  Receipt Date: 20160210
  Transmission Date: 20160526
  Serious: No
  Sender: FDA-Public Use
  Company Number: US-ALLERGAN-1500879US

PATIENT
  Sex: Female

DRUGS (8)
  1. PERCOCET [Concomitant]
     Active Substance: ACETAMINOPHEN\OXYCODONE HYDROCHLORIDE
  2. SPIRONOLACTONE. [Concomitant]
     Active Substance: SPIRONOLACTONE
     Dosage: 100 MG, UNK
  3. TIZANIDINE. [Concomitant]
     Active Substance: TIZANIDINE
     Dosage: 5 MG, UNK
  4. VALIUM [Concomitant]
     Active Substance: DIAZEPAM
     Dosage: 5 MG, UNK
  5. INDOMETHACIN. [Concomitant]
     Active Substance: INDOMETHACIN
     Dosage: 50 MG, UNK
  6. FIORICET [Concomitant]
     Active Substance: ACETAMINOPHEN\BUTALBITAL\CAFFEINE
  7. STADOL NS [Concomitant]
     Active Substance: BUTORPHANOL TARTRATE
  8. BOTOX [Suspect]
     Active Substance: ONABOTULINUMTOXINA
     Indication: MIGRAINE
     Dosage: 145 UNITS, SINGLE
     Route: 030
     Dates: start: 20141112, end: 20141112

REACTIONS (2)
  - Drug ineffective [Unknown]
  - Product preparation error [Unknown]
